FAERS Safety Report 17398750 (Version 1)
Quarter: 2020Q1

REPORT INFORMATION
  Report Type: Spontaneous
  Country: US (occurrence: US)
  Receive Date: 20200210
  Receipt Date: 20200210
  Transmission Date: 20200409
  Serious: No
  Sender: FDA-Public Use
  Company Number: US-VAYAPHARMA-2019-US-003453

PATIENT
  Age: 59 Year
  Sex: Female
  Weight: 68.04 kg

DRUGS (2)
  1. VAYARIN PLUS [Suspect]
     Active Substance: DOCONEXENT\ICOSAPENT\PHOSPHATIDYL SERINE
     Indication: ADRENAL DISORDER
     Dosage: ONE A DAY
     Route: 048
  2. UNSPECIFIED SUPPLEMENTS [Concomitant]

REACTIONS (2)
  - Malaise [Recovered/Resolved]
  - Asthenia [Recovered/Resolved]
